FAERS Safety Report 25460342 (Version 1)
Quarter: 2025Q2

REPORT INFORMATION
  Report Type: Spontaneous
  Country: US (occurrence: None)
  Receive Date: 20250619
  Receipt Date: 20250619
  Transmission Date: 20250716
  Serious: Yes (Death, Hospitalization)
  Sender: FDA-CTU
  Company Number: None

PATIENT
  Age: 72 Year
  Sex: Female
  Weight: 101.6 kg

DRUGS (6)
  1. CYCLOPHOSPHAMIDE [Suspect]
     Active Substance: CYCLOPHOSPHAMIDE
     Dates: end: 20250502
  2. CYTARABINE [Suspect]
     Active Substance: CYTARABINE
     Dates: end: 20250127
  3. SPRYCEL [Suspect]
     Active Substance: DASATINIB
  4. DEXAMETHASONE [Concomitant]
     Active Substance: DEXAMETHASONE
     Dates: end: 20250408
  5. DOXORUBICIN HYDROCHLORIDE [Suspect]
     Active Substance: DOXORUBICIN HYDROCHLORIDE
     Dates: end: 20241229
  6. DARZALEX FASPRO [Suspect]
     Active Substance: DARATUMUMAB\HYALURONIDASE-FIHJ

REACTIONS (13)
  - Bone marrow failure [None]
  - Febrile neutropenia [None]
  - Clostridium difficile colitis [None]
  - BK virus infection [None]
  - Viruria [None]
  - Dysphagia [None]
  - Hypervolaemia [None]
  - Acute kidney injury [None]
  - Respiratory failure [None]
  - Pneumonia [None]
  - Pleural effusion [None]
  - Stem cell transplant [None]
  - Post procedural complication [None]

NARRATIVE: CASE EVENT DATE: 20250616
